FAERS Safety Report 7564721-4 (Version None)
Quarter: 2011Q2

REPORT INFORMATION
  Report Type: 
  Country: None (occurrence: None)
  Receive Date: 20110622
  Receipt Date: 20101012
  Transmission Date: 20111010
  Serious: Yes (Death)
  Sender: FDA-Public Use
  Company Number: US-MYLANLABS-2010S1017575

PATIENT
  Age: 54 Year
  Sex: Female

DRUGS (7)
  1. CLOZAPINE [Suspect]
     Route: 048
  2. SYNTHROID [Concomitant]
  3. OS-CAL [Concomitant]
  4. PROVENTIL HFA /00139501/ [Concomitant]
     Dosage: EVERY 6 HOURS PRN
  5. TYLENOL-500 [Concomitant]
     Dosage: ONE OR TWO EVERY 4 HOURS PRN
  6. M.V.I. [Concomitant]
  7. RISPERDAL [Concomitant]

REACTIONS (1)
  - CARDIAC ARREST [None]
